FAERS Safety Report 8464586-2 (Version None)
Quarter: 2012Q2

REPORT INFORMATION
  Report Type: 
  Country: None (occurrence: None)
  Receive Date: 20120626
  Receipt Date: 20120611
  Transmission Date: 20120825
  Serious: Yes (Other)
  Sender: FDA-Public Use
  Company Number: US-SHIRE-ALL1-2012-02912

PATIENT
  Sex: Male

DRUGS (5)
  1. ADDERALL XR 10 [Suspect]
     Indication: ATTENTION DEFICIT/HYPERACTIVITY DISORDER
     Dosage: 10 MG, UNKNOWN
     Route: 048
  2. ADDERALL XR 10 [Suspect]
     Dosage: 400 MG, UNKNOWN
     Route: 048
  3. ADDERALL XR 10 [Suspect]
     Dosage: 300 MG, 1X/DAY:QD
     Route: 048
  4. ADDERALL XR 10 [Suspect]
     Dosage: UNK, UNKNOWN
     Route: 048
  5. ADDERALL XR 10 [Suspect]
     Dosage: 30 MG, 1X/DAY:QD
     Route: 048

REACTIONS (7)
  - HEART RATE INCREASED [None]
  - DISTURBANCE IN ATTENTION [None]
  - INTENTIONAL OVERDOSE [None]
  - DRUG ABUSE [None]
  - CONVULSION [None]
  - DRUG DIVERSION [None]
  - HALLUCINATION [None]
